FAERS Safety Report 6521633-2 (Version None)
Quarter: 2009Q4

REPORT INFORMATION
  Report Type: 
  Country: None (occurrence: None)
  Receive Date: 20091230
  Receipt Date: 20091217
  Transmission Date: 20100525
  Serious: Yes (Hospitalization)
  Sender: FDA-Public Use
  Company Number: PHEH2009US18079

PATIENT
  Sex: Male

DRUGS (3)
  1. CLOZAPINE [Suspect]
     Dosage: UNK
  2. CLOZAPINE [Suspect]
     Dosage: 125 MG AM AND 150 MG PM
     Route: 048
     Dates: start: 20091208
  3. DEPAKOTE [Concomitant]

REACTIONS (5)
  - HALLUCINATION, AUDITORY [None]
  - OROPHARYNGEAL PAIN [None]
  - PSYCHOTIC DISORDER [None]
  - PYREXIA [None]
  - TREATMENT NONCOMPLIANCE [None]
